FAERS Safety Report 18586659 (Version 4)
Quarter: 2021Q1

REPORT INFORMATION
  Report Type: Spontaneous
  Country: CZ (occurrence: CZ)
  Receive Date: 20201207
  Receipt Date: 20210203
  Transmission Date: 20210419
  Serious: Yes (Hospitalization, Other)
  Sender: FDA-Public Use
  Company Number: CZ-JNJFOC-20201130866

PATIENT
  Age: 37 Year
  Sex: Male

DRUGS (14)
  1. OLANZAPINE. [Suspect]
     Active Substance: OLANZAPINE
     Indication: SCHIZOPHRENIA
     Dosage: 10 MILLIGRAM DAILY; 10 MG
     Route: 065
     Dates: start: 2014
  2. OLANZAPINE. [Suspect]
     Active Substance: OLANZAPINE
     Indication: SCHIZOPHRENIA
     Route: 065
     Dates: end: 2020
  3. PREGABALIN. [Concomitant]
     Active Substance: PREGABALIN
     Indication: ANXIETY
     Dates: start: 2016
  4. INSULIN [Concomitant]
     Active Substance: INSULIN NOS
     Indication: TYPE 2 DIABETES MELLITUS
     Dates: start: 2013
  5. RISPERDAL [Suspect]
     Active Substance: RISPERIDONE
     Indication: SCHIZOPHRENIA
     Dosage: FIRST ORALLY, LATER SWITCHED TO LONG?LASTING INJECTION FORM
     Route: 048
     Dates: start: 2004
  6. RISPERDAL CONSTA [Suspect]
     Active Substance: RISPERIDONE
  7. RISPERDAL CONSTA [Suspect]
     Active Substance: RISPERIDONE
  8. RISPERDAL CONSTA [Suspect]
     Active Substance: RISPERIDONE
     Indication: SCHIZOPHRENIA
     Route: 065
     Dates: start: 2004
  9. PERINDOPRIL [Concomitant]
     Active Substance: PERINDOPRIL
     Indication: HYPERTENSION
     Dosage: 4 MILLIGRAM DAILY; 4 MG
     Route: 065
  10. VORTIOXETINE. [Concomitant]
     Active Substance: VORTIOXETINE
     Indication: DEPRESSION
     Dates: start: 2016
  11. ARIPIPRAZOLE. [Concomitant]
     Active Substance: ARIPIPRAZOLE
     Indication: SCHIZOPHRENIA
     Dates: start: 2013
  12. REPAGLINIDE. [Suspect]
     Active Substance: REPAGLINIDE
     Indication: TYPE 2 DIABETES MELLITUS
     Route: 048
     Dates: end: 2017
  13. RISPERDAL CONSTA [Suspect]
     Active Substance: RISPERIDONE
  14. QUETIAPINE. [Suspect]
     Active Substance: QUETIAPINE
     Indication: SCHIZOPHRENIA
     Dosage: 200 MILLIGRAM DAILY; 200 MG INCREASED TO 600 MG IN 2007, LATER DISCONTINUED
     Route: 065

REACTIONS (6)
  - Metabolic disorder [Recovering/Resolving]
  - Hyperprolactinaemia [Unknown]
  - Drug intolerance [Unknown]
  - Pancreatitis acute [Recovered/Resolved]
  - Gynaecomastia [Unknown]
  - Schizophrenia [Recovering/Resolving]

NARRATIVE: CASE EVENT DATE: 2004
